FAERS Safety Report 10061347 (Version 1)
Quarter: 2014Q2

REPORT INFORMATION
  Report Type: Spontaneous
  Country: CA (occurrence: CA)
  Receive Date: 20140407
  Receipt Date: 20140407
  Transmission Date: 20141212
  Serious: Yes (Life-Threatening)
  Sender: FDA-Public Use
  Company Number: CA-009507513-1404CAN002204

PATIENT
  Age: 15 Year
  Sex: Male

DRUGS (4)
  1. SINGULAIR [Suspect]
     Dosage: 10.0 MG, QD
     Route: 048
  2. ADVAIR [Concomitant]
     Route: 065
  3. FLOVENT [Concomitant]
     Route: 065
  4. VENTOLIN (ALBUTEROL SULFATE) [Concomitant]
     Route: 065

REACTIONS (6)
  - Suicidal ideation [Unknown]
  - Affect lability [Unknown]
  - Anxiety [Unknown]
  - Negative thoughts [Unknown]
  - Obsessive thoughts [Unknown]
  - Agitation [Unknown]
